FAERS Safety Report 25083729 (Version 1)
Quarter: 2025Q1

REPORT INFORMATION
  Report Type: Spontaneous
  Country: US (occurrence: None)
  Receive Date: 20250314
  Receipt Date: 20250314
  Transmission Date: 20250409
  Serious: Yes (Hospitalization)
  Sender: FDA-CTU
  Company Number: None

PATIENT
  Age: 66 Year
  Sex: Male

DRUGS (12)
  1. TACROLIMUS [Suspect]
     Active Substance: TACROLIMUS
  2. PREDNISONE [Concomitant]
     Indication: Liver transplant
     Dosage: FREQUENCY : TWICE A DAY;?
     Route: 048
     Dates: start: 20250313
  3. ACETAMINOPHEN [Concomitant]
     Active Substance: ACETAMINOPHEN
  4. Flaxseed Oil 100 mg Capsules [Concomitant]
  5. VITAMINS [Concomitant]
     Active Substance: VITAMINS
  6. Amlodipine 1O mg Tablets [Concomitant]
  7. Aspirin 81 mg Capsules [Concomitant]
  8. Atovaquone 750 mg/ml [Concomitant]
  9. Escitalopram 10 mg tablets [Concomitant]
  10. EZETIMIBE [Concomitant]
     Active Substance: EZETIMIBE
  11. LOKELMA [Concomitant]
     Active Substance: SODIUM ZIRCONIUM CYCLOSILICATE
  12. PANTOPRAZOLE SODIUM [Concomitant]
     Active Substance: PANTOPRAZOLE SODIUM

REACTIONS (3)
  - Cerebrovascular accident [None]
  - Confusional state [None]
  - Speech disorder [None]

NARRATIVE: CASE EVENT DATE: 20250313
